FAERS Safety Report 4640111-9 (Version None)
Quarter: 2005Q2

REPORT INFORMATION
  Report Type: 
  Country: None (occurrence: None)
  Receive Date: 20050420
  Receipt Date: 20050329
  Transmission Date: 20051028
  Serious: Yes (Other)
  Sender: FDA-Public Use
  Company Number: FR-ROCHE-400023

PATIENT
  Age: 57 Year
  Sex: Female
  Weight: 64 kg

DRUGS (2)
  1. PEGASYS [Suspect]
     Indication: HEPATITIS C
     Route: 058
     Dates: start: 20041029, end: 20041228
  2. COPEGUS [Suspect]
     Indication: HEPATITIS C
     Route: 048
     Dates: start: 20041029

REACTIONS (5)
  - LEUKOPENIA [None]
  - NEUTROPENIA [None]
  - SMOOTH MUSCLE ANTIBODY POSITIVE [None]
  - THROMBOCYTOPENIA [None]
  - TRANSAMINASES INCREASED [None]
